FAERS Safety Report 7685187-X (Version None)
Quarter: 2011Q3

REPORT INFORMATION
  Report Type: 
  Country: None (occurrence: None)
  Receive Date: 20110816
  Receipt Date: 20110811
  Transmission Date: 20111222
  Serious: Yes (Other)
  Sender: FDA-Public Use
  Company Number: BR-PFIZER INC-2011184964

PATIENT
  Age: 63 Year
  Sex: Male
  Weight: 71 kg

DRUGS (2)
  1. ALPRAZOLAM [Suspect]
     Indication: ANXIETY
  2. ALPRAZOLAM [Suspect]
     Indication: NERVOUSNESS
     Dosage: 0.25 MG, 1X/DAY
     Route: 048
     Dates: start: 20110612, end: 20110805

REACTIONS (4)
  - BLOOD PRESSURE INCREASED [None]
  - TACHYCARDIA [None]
  - MYALGIA [None]
  - HEADACHE [None]
